FAERS Safety Report 6134484-8 (Version None)
Quarter: 2009Q1

REPORT INFORMATION
  Report Type: 
  Country: None (occurrence: None)
  Receive Date: 20090327
  Receipt Date: 20090323
  Transmission Date: 20090719
  Serious: Yes (Other)
  Sender: FDA-Public Use
  Company Number: US-JNJCH-2009008068

PATIENT
  Age: 59 Year
  Sex: Female
  Weight: 68 kg

DRUGS (4)
  1. BENADRYL [Suspect]
     Indication: DRUG USE FOR UNKNOWN INDICATION
     Dosage: TEXT:UNSPECIFIED
     Route: 048
  2. BENADRYL D ALLERGY + SINUS [Suspect]
     Indication: ACCIDENTAL EXPOSURE
     Dosage: TEXT:AS DIRECTED 2 PILLS WITHIN 1.5 HOURS
     Route: 048
     Dates: start: 20090302, end: 20090302
  3. LOTREL [Concomitant]
     Indication: HYPERTENSION
     Dosage: TEXT:UNSPECIFIED
     Route: 065
  4. XANAX [Concomitant]
     Indication: ANXIETY
     Dosage: TEXT:0.5 AS NEEDED
     Route: 065

REACTIONS (3)
  - INCORRECT DRUG ADMINISTRATION DURATION [None]
  - PALPITATIONS [None]
  - PRODUCT QUALITY ISSUE [None]
